FAERS Safety Report 10382111 (Version 1)
Quarter: 2014Q3

REPORT INFORMATION
  Report Type: Spontaneous
  Country: AU (occurrence: None)
  Receive Date: 20140811
  Receipt Date: 20140811
  Transmission Date: 20150326
  Serious: Yes (Other)
  Sender: FDA-Public Use
  Company Number: AXC-2014-00475

PATIENT
  Age: 71 Year
  Sex: Female

DRUGS (1)
  1. SUCRALFATE. [Suspect]
     Active Substance: SUCRALFATE
     Indication: ABDOMINAL PAIN UPPER
     Route: 048
     Dates: start: 20140627, end: 20140627

REACTIONS (6)
  - Abdominal pain [None]
  - Increased upper airway secretion [None]
  - Bronchial secretion retention [None]
  - Hypersensitivity [None]
  - Nausea [None]
  - Respiratory distress [None]

NARRATIVE: CASE EVENT DATE: 20140627
